FAERS Safety Report 25721238 (Version 1)
Quarter: 2025Q3

REPORT INFORMATION
  Report Type: Spontaneous
  Country: US (occurrence: None)
  Receive Date: 20250822
  Receipt Date: 20250822
  Transmission Date: 20251021
  Serious: Yes (Other)
  Sender: FDA-CTU
  Company Number: None

PATIENT
  Age: 73 Year
  Sex: Male
  Weight: 54 kg

DRUGS (2)
  1. VIMPAT [Suspect]
     Active Substance: LACOSAMIDE
     Indication: Seizure
     Dates: start: 20250812, end: 20250819
  2. VIMPAT [Suspect]
     Active Substance: LACOSAMIDE
     Indication: Cerebrovascular accident

REACTIONS (3)
  - Seizure [None]
  - Cerebrovascular accident [None]
  - Paradoxical drug reaction [None]

NARRATIVE: CASE EVENT DATE: 20250819
